FAERS Safety Report 20705211 (Version 2)
Quarter: 2022Q2

REPORT INFORMATION
  Report Type: Other
  Country: US (occurrence: None)
  Receive Date: 20220413
  Receipt Date: 20220505
  Transmission Date: 20220720
  Serious: Yes (Hospitalization)
  Sender: FDA-Public Use
  Company Number: US-ROCHE-3067568

PATIENT
  Age: 70 Year
  Sex: Male
  Weight: 61.744 kg

DRUGS (8)
  1. CELLCEPT [Suspect]
     Active Substance: MYCOPHENOLATE MOFETIL
     Indication: Renal transplant
     Route: 048
  2. ATORVASTATIN [Concomitant]
     Active Substance: ATORVASTATIN
  3. CARVEDILOL [Concomitant]
     Active Substance: CARVEDILOL
  4. SODIUM BICARBONATE [Concomitant]
     Active Substance: SODIUM BICARBONATE
  5. ASPIRIN [Concomitant]
     Active Substance: ASPIRIN
  6. BACTRIM [Concomitant]
     Active Substance: SULFAMETHOXAZOLE\TRIMETHOPRIM
  7. MEDROL [Concomitant]
     Active Substance: METHYLPREDNISOLONE
  8. FINASTERIDE [Concomitant]
     Active Substance: FINASTERIDE

REACTIONS (14)
  - Orthostatic hypotension [Unknown]
  - Hypotension [Unknown]
  - Asthenia [Unknown]
  - Weight decreased [Recovering/Resolving]
  - Acute kidney injury [Recovering/Resolving]
  - Haemoglobin decreased [Unknown]
  - Hyperkalaemia [Unknown]
  - Metabolic acidosis [Unknown]
  - Urinary tract infection [Unknown]
  - Urinary tract obstruction [Unknown]
  - Haematuria [Unknown]
  - Sepsis [Unknown]
  - Nausea [Unknown]
  - Encephalopathy [Unknown]

NARRATIVE: CASE EVENT DATE: 20210601
